FAERS Safety Report 7257147-4 (Version None)
Quarter: 2011Q1

REPORT INFORMATION
  Report Type: 
  Country: None (occurrence: None)
  Receive Date: 20110129
  Receipt Date: 20100802
  Transmission Date: 20110831
  Serious: No
  Sender: FDA-Public Use
  Company Number: US-ABBOTT-10P-163-0661169-00

PATIENT
  Age: 43 Year
  Sex: Female

DRUGS (24)
  1. VITAMIN B-12 [Concomitant]
     Indication: CROHN'S DISEASE
  2. ULTRAM [Concomitant]
     Indication: PAIN
  3. HYOMAX [Concomitant]
     Indication: PAIN
  4. IMITREX [Concomitant]
     Indication: HEADACHE
     Route: 030
  5. PROMETHAZINE [Concomitant]
     Indication: NAUSEA
  6. RECLAST [Concomitant]
     Indication: OSTEOPOROSIS
  7. ULTRAM [Concomitant]
  8. ALBUTEROL [Concomitant]
     Dosage: NEBULIZER
  9. VIT D [Concomitant]
     Indication: OSTEOPOROSIS
  10. VITAMIN B-12 [Concomitant]
     Indication: HYPOVITAMINOSIS
     Route: 030
  11. LYRICA [Concomitant]
     Indication: FIBROMYALGIA
  12. HYOMAX [Concomitant]
     Indication: CROHN'S DISEASE
     Dosage: 1-4 IN 1 D AS NEEDED
     Route: 060
  13. PERCOCET [Concomitant]
     Indication: CROHN'S DISEASE
     Dosage: 5-325 1 IN 4 HRS AS NEEDED
  14. PERCOCET [Concomitant]
     Indication: PAIN
  15. PRILOSEC [Concomitant]
     Indication: VOMITING
  16. CHLOTRIMAZOLE [Concomitant]
     Indication: CANDIDIASIS
  17. FLEXERIL [Concomitant]
     Indication: FIBROMYALGIA
     Dosage: 3 IN 1 D AS NEEDED
  18. PROMETHAZINE [Concomitant]
     Indication: CROHN'S DISEASE
  19. AMITRIPTYLENE [Concomitant]
     Indication: INSOMNIA
     Dosage: 10 AND 25 MG 1 - 3 TABLETS AT BEDTIME VARIES
  20. TYLENOL-500 [Concomitant]
     Indication: PAIN
  21. HUMIRA [Suspect]
     Indication: CROHN'S DISEASE
     Dates: start: 20100623
  22. ALBUTEROL [Concomitant]
     Indication: ASTHMA
     Route: 055
  23. LEXAPRO [Concomitant]
     Indication: DEPRESSION
  24. PRILOSEC [Concomitant]
     Indication: NAUSEA

REACTIONS (5)
  - FATIGUE [None]
  - PYREXIA [None]
  - INJECTION SITE RASH [None]
  - HEADACHE [None]
  - BLISTER [None]
